FAERS Safety Report 5056321-5 (Version None)
Quarter: 2006Q3

REPORT INFORMATION
  Report Type: 
  Country: None (occurrence: None)
  Receive Date: 20060717
  Receipt Date: 20060705
  Transmission Date: 20061208
  Serious: Yes (Death, Life-Threatening, Hospitalization)
  Sender: FDA-Public Use
  Company Number: DEWYE149017NOV05

PATIENT
  Age: 70 Year
  Sex: Male

DRUGS (4)
  1. GEMTUZUMAB OZOGAMICIN [Suspect]
     Dosage: 12.18 MG
     Route: 042
     Dates: start: 20051110
  2. CYTARABINE [Suspect]
     Dosage: 1435 MG CUMULATIVE DOSE
     Route: 042
     Dates: start: 20051122, end: 20051130
  3. ETOPOSIDE [Suspect]
     Dosage: 615 MG CUMULATIVE DOSE
     Route: 042
     Dates: start: 20051122, end: 20051124
  4. NOVANTRONE [Suspect]
     Dosage: 28.7 MG CUMULATIVE DOSE
     Route: 042
     Dates: start: 20051126, end: 20051128

REACTIONS (3)
  - MYOCARDIAL INFARCTION [None]
  - SEPTIC SHOCK [None]
  - VENTRICULAR TACHYCARDIA [None]
